FAERS Safety Report 5126743-2 (Version None)
Quarter: 2006Q4

REPORT INFORMATION
  Report Type: 
  Country: None (occurrence: None)
  Receive Date: 20061012
  Receipt Date: 20061012
  Transmission Date: 20070319
  Serious: Yes (Life-Threatening, Other)
  Sender: FDA-Public Use
  Company Number: None

PATIENT
  Age: 29 Year
  Sex: Female
  Weight: 48.9885 kg

DRUGS (5)
  1. ZOLOFT [Suspect]
     Indication: ANXIETY
     Dosage: 37.5MG  1XDAY  ORAL
     Route: 048
     Dates: start: 20060406, end: 20060420
  2. ZOLOFT [Suspect]
     Indication: DEPRESSION
     Dosage: 37.5MG  1XDAY  ORAL
     Route: 048
     Dates: start: 20060406, end: 20060420
  3. ZOLOFT [Suspect]
     Indication: ANXIETY
     Dosage: 25MG + WEANING OFF   OVER SIX WEEKS  ORAL
     Route: 048
     Dates: start: 20051109, end: 20060210
  4. ZOLOFT [Suspect]
     Indication: DEPRESSION
     Dosage: 25MG + WEANING OFF   OVER SIX WEEKS  ORAL
     Route: 048
     Dates: start: 20051109, end: 20060210
  5. CLONAZEPAM [Concomitant]

REACTIONS (7)
  - AGITATION [None]
  - CRYING [None]
  - HOSTILITY [None]
  - IMPULSIVE BEHAVIOUR [None]
  - PANIC ATTACK [None]
  - STUPOR [None]
  - SUICIDAL IDEATION [None]
